FAERS Safety Report 6319014-X (Version None)
Quarter: 2009Q3

REPORT INFORMATION
  Report Type: 
  Country: None (occurrence: None)
  Receive Date: 20090821
  Receipt Date: 20080731
  Transmission Date: 20100115
  Serious: No
  Sender: FDA-Public Use
  Company Number: US-ABBOTT-08P-163-0465358-00

PATIENT
  Sex: Male

DRUGS (7)
  1. NIASPAN [Suspect]
     Indication: BLOOD DISORDER
     Route: 048
     Dates: start: 20080704, end: 20080710
  2. NIASPAN [Suspect]
     Route: 048
     Dates: start: 20080711, end: 20080717
  3. NIASPAN [Suspect]
     Route: 048
     Dates: start: 20080718
  4. DIOVAN HCT [Concomitant]
     Indication: BLOOD PRESSURE
  5. IBUPROFEN [Concomitant]
     Indication: DRUG USE FOR UNKNOWN INDICATION
  6. ROSUVASTATIN [Concomitant]
     Indication: DRUG USE FOR UNKNOWN INDICATION
  7. GLUCOSAMINE [Concomitant]
     Indication: DRUG USE FOR UNKNOWN INDICATION

REACTIONS (2)
  - FLUSHING [None]
  - PRURITUS [None]
